FAERS Safety Report 14842894 (Version 1)
Quarter: 2018Q2

REPORT INFORMATION
  Report Type: Spontaneous
  Country: PH (occurrence: PH)
  Receive Date: 20180503
  Receipt Date: 20180503
  Transmission Date: 20180711
  Serious: Yes (Other)
  Sender: FDA-Public Use
  Company Number: PH-PFIZER INC-2018177874

PATIENT
  Sex: Male

DRUGS (2)
  1. PREGABALIN. [Suspect]
     Active Substance: PREGABALIN
     Indication: NEUROPATHY PERIPHERAL
     Dosage: UNK
  2. PLETAAL [Suspect]
     Active Substance: CILOSTAZOL
     Indication: ANGIOPATHY
     Dosage: UNK

REACTIONS (2)
  - Deafness [Unknown]
  - Drug ineffective [Unknown]
